FAERS Safety Report 14974150 (Version 1)
Quarter: 2018Q2

REPORT INFORMATION
  Report Type: Spontaneous
  Country: GB (occurrence: GB)
  Receive Date: 20180605
  Receipt Date: 20180605
  Transmission Date: 20180711
  Serious: Yes (Hospitalization)
  Sender: FDA-Public Use
  Company Number: GB-TEVA-2018-GB-902217

PATIENT
  Age: 73 Year

DRUGS (9)
  1. BUMETANIDE. [Suspect]
     Active Substance: BUMETANIDE
     Dosage: 2 MILLIGRAM DAILY;
     Route: 048
  2. ATORVASTATIN [Concomitant]
     Active Substance: ATORVASTATIN
  3. DIGOXIN. [Concomitant]
     Active Substance: DIGOXIN
  4. METFORMIN [Suspect]
     Active Substance: METFORMIN HYDROCHLORIDE
     Dosage: 2550 MILLIGRAM DAILY;
     Route: 048
     Dates: end: 20171024
  5. DOCUSATE [Concomitant]
     Active Substance: DOCUSATE
  6. CASSIA [Concomitant]
  7. MOXONIDINE [Concomitant]
     Active Substance: MOXONIDINE
  8. RAMIPRIL. [Suspect]
     Active Substance: RAMIPRIL
     Dosage: 10 MILLIGRAM DAILY; AT NIGHT
     Route: 048
  9. DOXAZOSIN [Concomitant]
     Active Substance: DOXAZOSIN\DOXAZOSIN MESYLATE

REACTIONS (2)
  - Lower respiratory tract infection [Unknown]
  - Acute kidney injury [Recovered/Resolved]

NARRATIVE: CASE EVENT DATE: 20171024
